FAERS Safety Report 9384737 (Version 1)
Quarter: 2013Q3

REPORT INFORMATION
  Report Type: Spontaneous
  Country: GB (occurrence: None)
  Receive Date: 20130701
  Receipt Date: 20130701
  Transmission Date: 20140515
  Serious: Yes (Other)
  Sender: FDA-Public Use
  Company Number: AUR-APL-2013-05322

PATIENT
  Age: 71 Year
  Sex: Male
  Weight: 94.8 kg

DRUGS (8)
  1. CLOPIDOGREL [Suspect]
     Indication: CEREBROVASCULAR ACCIDENT
     Dosage: 75 MG (75 MG, 1 IN 1 D), ORAL
     Route: 048
     Dates: start: 201212, end: 20130602
  2. BISOPROLOL [Concomitant]
  3. CO-CODAMOL (PANADEINE CO) [Concomitant]
  4. GLICLAZIDE [Concomitant]
  5. NICORANDIL [Concomitant]
  6. OMEPRAZOLE [Concomitant]
  7. PRAVASTATIN [Concomitant]
  8. RAMIPRIL [Concomitant]

REACTIONS (1)
  - Hyperglycaemia [None]
